FAERS Safety Report 7474445-X (Version None)
Quarter: 2011Q2

REPORT INFORMATION
  Report Type: 
  Country: None (occurrence: None)
  Receive Date: 20110512
  Receipt Date: 20110208
  Transmission Date: 20111010
  Serious: No
  Sender: FDA-Public Use
  Company Number: US-BAYER-2011-013173

PATIENT
  Age: 81 Year
  Sex: Male

DRUGS (2)
  1. AVELOX [Suspect]
     Indication: BRONCHITIS CHRONIC
     Dosage: UNK, QD
     Dates: start: 20110131, end: 20110204
  2. MELPHALAN HYDROCHLORIDE [Concomitant]

REACTIONS (1)
  - TONSILLITIS [None]
